FAERS Safety Report 6117298-4 (Version None)
Quarter: 2009Q1

REPORT INFORMATION
  Report Type: 
  Country: None (occurrence: None)
  Receive Date: 20090314
  Receipt Date: 20090112
  Transmission Date: 20090719
  Serious: No
  Sender: FDA-Public Use
  Company Number: US-ABBOTT-09P-163-0497491-00

PATIENT
  Sex: Male
  Weight: 83.99 kg

DRUGS (21)
  1. HUMIRA [Suspect]
     Indication: ANKYLOSING SPONDYLITIS
     Route: 058
     Dates: start: 20070101
  2. HUMIRA [Suspect]
     Indication: OSTEOARTHRITIS
  3. HUMIRA [Suspect]
     Indication: ARTHRITIS
  4. HUMIRA [Suspect]
     Indication: ANKYLOSING SPONDYLITIS
     Dates: start: 20060101, end: 20070101
  5. HUMIRA [Suspect]
     Indication: OSTEOARTHRITIS
  6. HUMIRA [Suspect]
     Indication: ARTHRITIS
  7. PREDNISONE [Concomitant]
     Indication: ARTHRITIS
  8. LORTAB [Concomitant]
     Indication: PAIN
  9. ZOMETA [Concomitant]
     Indication: BONE DISORDER
     Route: 042
  10. MACRODANTIN [Concomitant]
     Indication: BLADDER DISORDER
  11. PRILOSEC [Concomitant]
     Indication: GASTROOESOPHAGEAL REFLUX PROPHYLAXIS
  12. CLONIDINE [Concomitant]
     Indication: HYPERTENSION
  13. RYTHMOL [Concomitant]
     Indication: HEART RATE IRREGULAR
  14. RYTHMOL [Concomitant]
     Indication: ARRHYTHMIA
  15. LOTREL [Concomitant]
     Indication: HYPERTENSION
     Dosage: 5/20 MG
  16. COUMADIN [Concomitant]
     Indication: CEREBROVASCULAR ACCIDENT PROPHYLAXIS
     Dosage: TAKES 5 MG DAILY FOR 4 DAYS A WEEK THEN 2.5 MG DAILY FOR THREE DAYS A WEEK
  17. COUMADIN [Concomitant]
  18. FUROSEMIDE [Concomitant]
     Indication: HYPERTENSION
  19. DURAGESIC-100 [Concomitant]
     Indication: PAIN
     Dosage: PATCHES
     Route: 061
  20. XANAX [Concomitant]
     Indication: DEPRESSION
  21. TESTRIM [Concomitant]
     Indication: BONE DISORDER

REACTIONS (2)
  - INCORRECT DOSE ADMINISTERED [None]
  - WRONG TECHNIQUE IN DRUG USAGE PROCESS [None]
